FAERS Safety Report 6881835-2 (Version None)
Quarter: 2010Q3

REPORT INFORMATION
  Report Type: 
  Country: None (occurrence: None)
  Receive Date: 20100729
  Receipt Date: 20100728
  Transmission Date: 20110219
  Serious: Yes (Other)
  Sender: FDA-Public Use
  Company Number: GB-PERRIGO-10GB011620

PATIENT
  Sex: Female

DRUGS (4)
  1. IBUPROFEN [Suspect]
     Indication: UPPER LIMB FRACTURE
     Dosage: UNK
     Route: 048
  2. IBUPROFEN [Suspect]
     Indication: WRIST FRACTURE
  3. IBUPROFEN TABLETS [Suspect]
     Indication: UPPER LIMB FRACTURE
     Dosage: UNK
     Route: 048
  4. IBUPROFEN TABLETS [Suspect]
     Indication: WRIST FRACTURE

REACTIONS (1)
  - DIARRHOEA [None]
